FAERS Safety Report 7447568-9 (Version None)
Quarter: 2011Q2

REPORT INFORMATION
  Report Type: 
  Country: None (occurrence: None)
  Receive Date: 20110429
  Receipt Date: 20110210
  Transmission Date: 20111010
  Serious: No
  Sender: FDA-Public Use
  Company Number: US-ASTRAZENECA-2011SE04666

PATIENT
  Age: 58 Year
  Sex: Female
  Weight: 65.8 kg

DRUGS (8)
  1. SEROQUEL [Suspect]
     Indication: ANXIETY
     Route: 048
     Dates: start: 20100401, end: 20100501
  2. SEROQUEL [Suspect]
     Route: 048
     Dates: start: 20110201
  3. NEXIUM [Suspect]
     Indication: GASTROOESOPHAGEAL REFLUX DISEASE
     Route: 048
     Dates: start: 20090101
  4. SEROQUEL [Suspect]
     Indication: DEPRESSION
     Route: 048
     Dates: start: 20100401, end: 20100501
  5. SEROQUEL [Suspect]
     Route: 048
     Dates: start: 20110201
  6. XANAX XR [Concomitant]
  7. XANAX [Concomitant]
  8. THYROID MEDICATION [Concomitant]

REACTIONS (7)
  - FEELING ABNORMAL [None]
  - DISTURBANCE IN ATTENTION [None]
  - DIZZINESS [None]
  - ENURESIS [None]
  - ROAD TRAFFIC ACCIDENT [None]
  - WEIGHT DECREASED [None]
  - HEADACHE [None]
